FAERS Safety Report 11162514 (Version 2)
Quarter: 2016Q2

REPORT INFORMATION
  Report Type: Spontaneous
  Country: US (occurrence: US)
  Receive Date: 20150604
  Receipt Date: 20160524
  Transmission Date: 20160815
  Serious: No
  Sender: FDA-Public Use
  Company Number: US-SA-2015SA049621

PATIENT
  Age: 71 Year
  Sex: Female

DRUGS (6)
  1. COREG [Concomitant]
     Active Substance: CARVEDILOL
     Dosage: STRENGTH: 25 MG
  2. METFORMIN [Concomitant]
     Active Substance: METFORMIN HYDROCHLORIDE
     Dosage: STRENGTH: 1000 MG
  3. NOVOLOG [Suspect]
     Active Substance: INSULIN ASPART
     Route: 065
  4. VERAPAMIL [Concomitant]
     Active Substance: VERAPAMIL HYDROCHLORIDE
     Dosage: STRENGTH: 240
  5. LANTUS [Suspect]
     Active Substance: INSULIN GLARGINE
     Indication: DIABETES MELLITUS
     Route: 065
  6. LISINOPRIL. [Concomitant]
     Active Substance: LISINOPRIL
     Dosage: STRENGTH: 40 MG

REACTIONS (3)
  - Malaise [Not Recovered/Not Resolved]
  - Blood glucose decreased [Not Recovered/Not Resolved]
  - Wrong drug administered [Unknown]
